FAERS Safety Report 21839186 (Version 1)
Quarter: 2023Q1

REPORT INFORMATION
  Report Type: Spontaneous
  Country: US (occurrence: None)
  Receive Date: 20230107
  Receipt Date: 20230107
  Transmission Date: 20230418
  Serious: Yes (Hospitalization)
  Sender: FDA-Public Use
  Company Number: None

PATIENT
  Age: 74 Year
  Sex: Male
  Weight: 86 kg

DRUGS (1)
  1. PEMBROLIZUMAB [Suspect]
     Active Substance: PEMBROLIZUMAB
     Indication: Transitional cell carcinoma
     Dosage: 400 MG OTHER IV?
     Route: 042
     Dates: start: 20210521, end: 20220811

REACTIONS (3)
  - Dizziness [None]
  - Hyponatraemia [None]
  - Hypotension [None]

NARRATIVE: CASE EVENT DATE: 20220922
